FAERS Safety Report 8143580-5 (Version None)
Quarter: 2012Q1

REPORT INFORMATION
  Report Type: 
  Country: None (occurrence: None)
  Receive Date: 20120217
  Receipt Date: 20111109
  Transmission Date: 20120608
  Serious: No
  Sender: FDA-Public Use
  Company Number: US-GLAXOSMITHKLINE-A0952488A

PATIENT
  Age: 80 Year
  Sex: Male

DRUGS (12)
  1. EX-LAX [Concomitant]
  2. GLUCOPHAGE [Concomitant]
  3. LIPITOR [Concomitant]
  4. VITAMIN D [Concomitant]
  5. METOPROLOL TARTRATE [Concomitant]
  6. DILACOR XR [Concomitant]
  7. LASIX [Concomitant]
  8. POTASSIUM CHLORIDE [Concomitant]
  9. STOOL SOFTENERS [Concomitant]
  10. VOTRIENT [Suspect]
     Indication: HEPATIC LESION
     Dosage: 800MG PER DAY
     Route: 048
     Dates: start: 20111028
  11. IRON [Concomitant]
  12. FISH OIL [Concomitant]

REACTIONS (2)
  - BLOOD GLUCOSE DECREASED [None]
  - FATIGUE [None]
